FAERS Safety Report 7488470-6 (Version None)
Quarter: 2011Q2

REPORT INFORMATION
  Report Type: 
  Country: None (occurrence: None)
  Receive Date: 20110518
  Receipt Date: 20110513
  Transmission Date: 20111010
  Serious: Yes (Death, Hospitalization)
  Sender: FDA-Public Use
  Company Number: PHHY2011MX41712

PATIENT
  Age: 75 Year
  Sex: Female

DRUGS (2)
  1. OCTREOTIDE ACETATE [Suspect]
     Indication: PLEURAL EFFUSION
  2. TPN [Concomitant]

REACTIONS (5)
  - SEPTIC SHOCK [None]
  - EMPYEMA [None]
  - PNEUMONIA [None]
  - PYREXIA [None]
  - DYSPNOEA AT REST [None]
